APPROVED DRUG PRODUCT: HUMORSOL
Active Ingredient: DEMECARIUM BROMIDE
Strength: 0.25%
Dosage Form/Route: SOLUTION/DROPS;OPHTHALMIC
Application: N011860 | Product #001
Applicant: MERCK AND CO INC
Approved: Approved Prior to Jan 1, 1982 | RLD: No | RS: No | Type: DISCN